FAERS Safety Report 16651312 (Version 5)
Quarter: 2019Q4

REPORT INFORMATION
  Report Type: Report from Study
  Country: US (occurrence: US)
  Receive Date: 20190731
  Receipt Date: 20191217
  Transmission Date: 20200122
  Serious: No
  Sender: FDA-Public Use
  Company Number: PHEH2019US031162

PATIENT
  Sex: Female

DRUGS (1)
  1. GLEEVEC [Suspect]
     Active Substance: IMATINIB MESYLATE
     Indication: PERIORBITAL SWELLING
     Route: 065

REACTIONS (7)
  - Diarrhoea [Unknown]
  - Swelling of eyelid [Unknown]
  - Faeces soft [Unknown]
  - Dry mouth [Unknown]
  - Taste disorder [Unknown]
  - Rash [Unknown]
  - Product use in unapproved indication [Unknown]
